FAERS Safety Report 11229198 (Version 1)
Quarter: 2015Q2

REPORT INFORMATION
  Report Type: Spontaneous
  Country: US (occurrence: US)
  Receive Date: 20150630
  Receipt Date: 20150630
  Transmission Date: 20150821
  Serious: No
  Sender: FDA-Public Use
  Company Number: US-BAUSCH-BL-2015-014135

PATIENT
  Age: 57 Year
  Sex: Female

DRUGS (1)
  1. JUBLIA [Suspect]
     Active Substance: EFINACONAZOLE
     Indication: ONYCHOMYCOSIS
     Route: 061
     Dates: start: 2014

REACTIONS (3)
  - Drug administration error [Unknown]
  - Ingrowing nail [Unknown]
  - Nail pigmentation [Unknown]

NARRATIVE: CASE EVENT DATE: 2014
